FAERS Safety Report 9242495 (Version 2)
Quarter: 2013Q2

REPORT INFORMATION
  Report Type: Spontaneous
  Country: FR (occurrence: FR)
  Receive Date: 20130419
  Receipt Date: 20130425
  Transmission Date: 20140414
  Serious: Yes (Death, Other)
  Sender: FDA-Public Use
  Company Number: FR-JNJFOC-20130405357

PATIENT
  Sex: 0

DRUGS (16)
  1. DOXORUBICIN [Suspect]
     Indication: MANTLE CELL LYMPHOMA
     Dosage: DAY 1
     Route: 042
  2. DOXORUBICIN [Suspect]
     Indication: MANTLE CELL LYMPHOMA
     Dosage: DAY 1
     Route: 065
  3. VINCRISTINE [Suspect]
     Indication: MANTLE CELL LYMPHOMA
     Dosage: DAY 1
     Route: 065
  4. PREDNISONE [Suspect]
     Indication: MANTLE CELL LYMPHOMA
     Dosage: DAYS 1-5
     Route: 065
  5. RITUXIMAB [Suspect]
     Indication: MANTLE CELL LYMPHOMA
     Dosage: DAYS 1-5
     Route: 065
  6. METHOTREXATE [Suspect]
     Indication: PROPHYLAXIS
     Dosage: DAYS 1-5
     Route: 037
  7. CYTARABINE [Suspect]
     Indication: PROPHYLAXIS
     Route: 037
  8. CORTICOSTEROIDS [Suspect]
     Indication: PROPHYLAXIS
     Dosage: DAYS 1-5
     Route: 037
  9. DEXAMETHASONE [Suspect]
     Indication: MANTLE CELL LYMPHOMA
     Dosage: DAYS 1-4
     Route: 065
  10. CYTARABINE [Suspect]
     Indication: MANTLE CELL LYMPHOMA
     Dosage: DAY 1; 4 INFUSIONS EVERY 12 HOURS
     Route: 065
  11. CYTARABINE [Suspect]
     Indication: MANTLE CELL LYMPHOMA
     Dosage: DAY 1
     Route: 065
  12. CISPLATIN [Suspect]
     Indication: MANTLE CELL LYMPHOMA
     Dosage: DAY 1 CONTINUOUS INFUSION
     Route: 042
  13. RADIOTHERAPY [Suspect]
     Indication: PERIPHERAL BLOOD STEM CELL APHERESIS
     Dosage: 10 GY OVER 3 DAYS TWICE-DAILY FRACTIONS
     Route: 065
  14. CYTARABINE [Suspect]
     Indication: PERIPHERAL BLOOD STEM CELL APHERESIS
     Route: 065
  15. MELPHALAN [Suspect]
     Indication: PERIPHERAL BLOOD STEM CELL APHERESIS
     Route: 065
  16. CYCLOPHOSPHAMIDE [Suspect]
     Indication: MANTLE CELL LYMPHOMA
     Dosage: DAY 1
     Route: 065

REACTIONS (5)
  - Neoplasm malignant [Fatal]
  - Adenocarcinoma of colon [Unknown]
  - Toxicity to various agents [Unknown]
  - Disease progression [Unknown]
  - Renal cell carcinoma [Unknown]
